FAERS Safety Report 6102684-9 (Version None)
Quarter: 2009Q1

REPORT INFORMATION
  Report Type: 
  Country: None (occurrence: None)
  Receive Date: 20090304
  Receipt Date: 20081230
  Transmission Date: 20090719
  Serious: No
  Sender: FDA-Public Use
  Company Number: A0761915A

PATIENT
  Age: 64 Year
  Sex: Male

DRUGS (12)
  1. REQUIP [Suspect]
     Indication: RESTLESS LEGS SYNDROME
     Dosage: 1.5MG UNKNOWN
     Route: 048
     Dates: start: 20040101, end: 20070101
  2. ROPINIROLE [Suspect]
     Indication: RESTLESS LEGS SYNDROME
     Dosage: 2MG FOUR TIMES PER DAY
     Route: 048
     Dates: start: 20070101
  3. ZANTAC [Suspect]
     Route: 048
     Dates: start: 19960101, end: 19970101
  4. NEXIUM [Concomitant]
  5. MEDIHALER ISO FORTE [Concomitant]
  6. TOPIRAMATE [Concomitant]
  7. PROVIGIL [Concomitant]
  8. LORATADINE [Concomitant]
  9. EVOXAC [Concomitant]
  10. EFFEXOR XR [Concomitant]
  11. METOPROLOL SUCCINATE [Concomitant]
  12. OXYBUTYNIN CHLORIDE [Concomitant]

REACTIONS (1)
  - DRUG INEFFECTIVE [None]
